FAERS Safety Report 21369730 (Version 2)
Quarter: 2022Q3

REPORT INFORMATION
  Report Type: Report from Study
  Country: US (occurrence: None)
  Receive Date: 20220923
  Receipt Date: 20220928
  Transmission Date: 20221027
  Serious: Yes (Hospitalization)
  Sender: FDA-Public Use
  Company Number: US-Eisai Medical Research-EC-2022-124087

PATIENT
  Age: 69 Year
  Sex: Male
  Weight: 70.6 kg

DRUGS (12)
  1. LENVATINIB [Suspect]
     Active Substance: LENVATINIB
     Indication: Neoplasm
     Route: 048
     Dates: start: 20220701, end: 20220818
  2. PEMBROLIZUMAB [Suspect]
     Active Substance: PEMBROLIZUMAB
     Indication: Neoplasm
     Route: 041
     Dates: start: 20220701, end: 20220819
  3. BELZUTIFAN [Suspect]
     Active Substance: BELZUTIFAN
     Indication: Neoplasm
     Route: 048
     Dates: start: 20220701, end: 20220818
  4. TYLENOL [Concomitant]
     Active Substance: ACETAMINOPHEN
     Dates: start: 20210802
  5. BIMATOPROST [Concomitant]
     Active Substance: BIMATOPROST
     Dates: start: 20210112
  6. MIRALAX [Concomitant]
     Active Substance: POLYETHYLENE GLYCOL 3350
     Dates: start: 20220624
  7. TRAMADOL HYDROCHLORIDE [Concomitant]
     Active Substance: TRAMADOL HYDROCHLORIDE
     Dates: start: 20220624
  8. COLACE [Concomitant]
     Active Substance: DOCUSATE SODIUM
     Dates: start: 20220321
  9. VITAMINS NOS [Concomitant]
     Active Substance: VITAMINS
     Dates: start: 20211202
  10. MICATIN [Concomitant]
     Active Substance: MICONAZOLE NITRATE
     Dates: start: 20211202
  11. HEPARIN [Concomitant]
     Active Substance: HEPARIN SODIUM
     Dates: start: 20220701
  12. SODIUM CHLORIDE [Concomitant]
     Active Substance: SODIUM CHLORIDE
     Dates: start: 20220701

REACTIONS (1)
  - Rectal haemorrhage [Recovering/Resolving]

NARRATIVE: CASE EVENT DATE: 20220916
